FAERS Safety Report 19323917 (Version 1)
Quarter: 2021Q2

REPORT INFORMATION
  Report Type: Spontaneous
  Country: US (occurrence: US)
  Receive Date: 20210528
  Receipt Date: 20210528
  Transmission Date: 20210717
  Serious: No
  Sender: FDA-Public Use
  Company Number: US-BAUSCH-BL-2021-018161

PATIENT
  Age: 46 Year
  Sex: Male

DRUGS (1)
  1. PLENVU [Suspect]
     Active Substance: ASCORBIC ACID\POLYETHYLENE GLYCOL 3350\POTASSIUM CHLORIDE\SODIUM ASCORBATE\SODIUM CHLORIDE\SODIUM SULFATE
     Indication: BOWEL PREPARATION
     Route: 065
     Dates: start: 20210514

REACTIONS (5)
  - Ill-defined disorder [Unknown]
  - Drug hypersensitivity [Unknown]
  - Chills [Unknown]
  - Conjunctival hyperaemia [Unknown]
  - Photophobia [Unknown]

NARRATIVE: CASE EVENT DATE: 20210514
